FAERS Safety Report 9847243 (Version 1)
Quarter: 2014Q1

REPORT INFORMATION
  Report Type: Spontaneous
  Country: US (occurrence: US)
  Receive Date: 20140127
  Receipt Date: 20140127
  Transmission Date: 20141002
  Serious: Yes (Hospitalization)
  Sender: FDA-Public Use
  Company Number: US-DYAX CORP.-2013DX000160

PATIENT
  Age: 14 Year
  Sex: Female
  Weight: 88.5 kg

DRUGS (6)
  1. KALBITOR [Suspect]
     Indication: HEREDITARY ANGIOEDEMA
     Route: 058
     Dates: start: 20130726, end: 20130726
  2. DEPO-PROVERA [Concomitant]
     Indication: MENSTRUAL CYCLE MANAGEMENT
     Route: 058
  3. ALBUTEROL [Concomitant]
     Indication: PRODUCT USED FOR UNKNOWN INDICATION
  4. CETIRIZINE [Concomitant]
     Indication: PRODUCT USED FOR UNKNOWN INDICATION
     Route: 048
  5. EPIPEN [Concomitant]
     Indication: PRODUCT USED FOR UNKNOWN INDICATION
  6. MULTIVITAMIN [Concomitant]
     Indication: PRODUCT USED FOR UNKNOWN INDICATION
     Route: 048

REACTIONS (4)
  - Drug ineffective for unapproved indication [Unknown]
  - Tongue pruritus [Recovered/Resolved]
  - Cough [Unknown]
  - Off label use [Recovered/Resolved]
